FAERS Safety Report 23897582 (Version 1)
Quarter: 2024Q2

REPORT INFORMATION
  Report Type: Spontaneous
  Country: CZ (occurrence: CZ)
  Receive Date: 20240524
  Receipt Date: 20240524
  Transmission Date: 20240716
  Serious: Yes (Other)
  Sender: FDA-Public Use
  Company Number: CZ-SANDOZ-SDZ2023CZ000205

PATIENT
  Age: 6 Year
  Sex: Male
  Weight: 16.5 kg

DRUGS (1)
  1. OMNITROPE [Suspect]
     Active Substance: SOMATROPIN
     Indication: Product used for unknown indication
     Dosage: 5 MG
     Route: 065

REACTIONS (6)
  - Leukaemia [Unknown]
  - Acute lymphocytic leukaemia [Unknown]
  - Pancytopenia [Unknown]
  - Tachycardia [Unknown]
  - Pyrexia [Unknown]
  - Pallor [Unknown]
